FAERS Safety Report 7921982 (Version 5)
Quarter: 2013Q4

REPORT INFORMATION
  Report Type: Spontaneous
  Country: US (occurrence: US)
  Receive Date: 20110429
  Receipt Date: 20131220
  Transmission Date: 20140711
  Serious: No
  Sender: FDA-Public Use
  Company Number: US-ASTRAZENECA-2010SE56795

PATIENT
  Age: 58 Year
  Sex: Female
  Weight: 90.7 kg

DRUGS (11)
  1. NEXIUM [Suspect]
     Indication: GASTROOESOPHAGEAL REFLUX DISEASE
     Dosage: ONCE A DAY
     Route: 048
  2. NEXIUM [Suspect]
     Indication: GASTROOESOPHAGEAL REFLUX DISEASE
     Route: 048
  3. NEXIUM [Suspect]
     Indication: GASTROOESOPHAGEAL REFLUX DISEASE
     Route: 048
  4. NEXIUM [Suspect]
     Indication: GASTROOESOPHAGEAL REFLUX DISEASE
     Route: 048
     Dates: start: 2003
  5. PRILOSEC [Suspect]
     Route: 048
  6. PRILOSEC OTC [Suspect]
     Indication: GASTROOESOPHAGEAL REFLUX DISEASE
     Route: 048
  7. PRILOSEC OTC [Suspect]
     Indication: ABDOMINAL DISCOMFORT
     Route: 048
  8. LOVASTATIN [Concomitant]
     Indication: BLOOD CHOLESTEROL ABNORMAL
  9. DEPAKOTE [Concomitant]
  10. SOMA [Concomitant]
  11. ZALAXOPINE [Concomitant]

REACTIONS (15)
  - Gastric disorder [Unknown]
  - Pneumonia [Unknown]
  - Laryngitis [Unknown]
  - Aphagia [Unknown]
  - Bronchitis [Unknown]
  - Bipolar disorder [Unknown]
  - Hyperchlorhydria [Unknown]
  - Adverse event [Unknown]
  - Abdominal pain upper [Unknown]
  - Malaise [Unknown]
  - Chest pain [Unknown]
  - Wrong patient received medication [Unknown]
  - Drug dose omission [Unknown]
  - Drug ineffective [Unknown]
  - Intentional drug misuse [Unknown]
